FAERS Safety Report 9506902 (Version 2)
Quarter: 2013Q3

REPORT INFORMATION
  Report Type: Spontaneous
  Country: US (occurrence: US)
  Receive Date: 20130909
  Receipt Date: 20130916
  Transmission Date: 20140515
  Serious: Yes (Death)
  Sender: FDA-Public Use
  Company Number: US-JNJFOC-20130811532

PATIENT
  Age: 92 Year
  Sex: Male

DRUGS (2)
  1. CHILDREN^S IMODIUM A-D [Suspect]
     Route: 048
  2. CHILDREN^S IMODIUM A-D [Suspect]
     Indication: PRODUCT USED FOR UNKNOWN INDICATION
     Route: 048

REACTIONS (1)
  - Cardiac failure [Fatal]
